FAERS Safety Report 6618467-7 (Version None)
Quarter: 2010Q1

REPORT INFORMATION
  Report Type: 
  Country: None (occurrence: None)
  Receive Date: 20100308
  Receipt Date: 20100226
  Transmission Date: 20100710
  Serious: Yes (Hospitalization)
  Sender: FDA-Public Use
  Company Number: JP-JNJFOC-20100207232

PATIENT
  Sex: Male

DRUGS (11)
  1. LEVOFLOXACIN [Suspect]
     Indication: URINARY TRACT INFECTION
     Route: 048
  2. LEVOFLOXACIN [Suspect]
     Route: 048
  3. LOXONIN [Suspect]
     Indication: URINARY TRACT INFECTION
     Route: 048
  4. LOXONIN [Suspect]
     Route: 048
  5. BLOPRESS [Concomitant]
     Indication: HYPERTENSION
     Route: 048
  6. NIVADIL [Concomitant]
     Indication: HYPERTENSION
     Route: 048
  7. NIVADIL [Concomitant]
     Route: 048
  8. ALLOPURINOL [Concomitant]
     Indication: HYPERURICAEMIA
     Route: 048
  9. DEPAS [Concomitant]
     Indication: ANXIETY DISORDER
     Route: 048
  10. LYSOZYME HYDROCHLORIDE [Concomitant]
     Indication: URINARY TRACT INFECTION
     Route: 048
  11. FIRSTCIN [Concomitant]
     Indication: URINARY TRACT INFECTION
     Route: 041

REACTIONS (4)
  - BLOOD CREATINE PHOSPHOKINASE INCREASED [None]
  - EOSINOPHIL COUNT INCREASED [None]
  - LIVER DISORDER [None]
  - RENAL DISORDER [None]
